FAERS Safety Report 6182970-7 (Version None)
Quarter: 2009Q2

REPORT INFORMATION
  Report Type: 
  Country: None (occurrence: None)
  Receive Date: 20090507
  Receipt Date: 20090505
  Transmission Date: 20091009
  Serious: Yes (Death)
  Sender: FDA-Public Use
  Company Number: US-ELI_LILLY_AND_COMPANY-US200905000919

PATIENT
  Age: 38 Year
  Sex: Female

DRUGS (1)
  1. XIGRIS [Suspect]
     Dosage: UNK, UNK
     Dates: start: 20090428, end: 20090501

REACTIONS (1)
  - CARDIAC FAILURE [None]
